FAERS Safety Report 7410267-3 (Version None)
Quarter: 2011Q2

REPORT INFORMATION
  Report Type: 
  Country: None (occurrence: None)
  Receive Date: 20110412
  Receipt Date: 20110318
  Transmission Date: 20111010
  Serious: Yes (Hospitalization, Other)
  Sender: FDA-Public Use
  Company Number: US-BAYER-2010-002124

PATIENT
  Age: 35 Year
  Sex: Female
  Weight: 90.703 kg

DRUGS (3)
  1. BENICAR [Concomitant]
     Indication: BLOOD PRESSURE ABNORMAL
     Dosage: UNK
     Route: 048
     Dates: start: 20050101, end: 20090101
  2. MOTRIN [Concomitant]
     Dosage: UNK UNK, PRN
  3. YAZ [Suspect]
     Indication: CONTRACEPTION
     Dosage: UNK
     Dates: start: 20060101, end: 20090101

REACTIONS (4)
  - CHOLECYSTECTOMY [None]
  - NAUSEA [None]
  - CHOLECYSTITIS CHRONIC [None]
  - ABDOMINAL PAIN [None]
